FAERS Safety Report 4945349-9 (Version None)
Quarter: 2006Q1

REPORT INFORMATION
  Report Type: 
  Country: None (occurrence: None)
  Receive Date: 20060315
  Receipt Date: 20060315
  Transmission Date: 20060701
  Serious: Yes (Life-Threatening, Other)
  Sender: FDA-Public Use
  Company Number: None

PATIENT
  Age: 78 Year
  Sex: Male
  Weight: 90.7194 kg

DRUGS (2)
  1. ARANESP [Suspect]
     Indication: ANAEMIA
     Dosage: ? DOSE SUBCUT
     Route: 058
     Dates: start: 20050101
  2. ARANESP [Suspect]
     Indication: PROSTATE CANCER
     Dosage: ? DOSE SUBCUT
     Route: 058
     Dates: start: 20050101

REACTIONS (1)
  - CARDIAC DISORDER [None]
